FAERS Safety Report 14231064 (Version 1)
Quarter: 2017Q4

REPORT INFORMATION
  Report Type: Spontaneous
  Country: US (occurrence: US)
  Receive Date: 20171128
  Receipt Date: 20171128
  Transmission Date: 20180321
  Serious: No
  Sender: FDA-Public Use
  Company Number: US-JNJFOC-20171002449

PATIENT
  Sex: Female

DRUGS (3)
  1. AVODART [Concomitant]
     Active Substance: DUTASTERIDE
     Indication: ANTIOESTROGEN THERAPY
     Route: 065
  2. WOMENS ROGAINE UNSCENTED [Suspect]
     Active Substance: MINOXIDIL
     Indication: ALOPECIA
     Route: 061
     Dates: start: 201702
  3. WOMENS ROGAINE UNSCENTED [Suspect]
     Active Substance: MINOXIDIL
     Route: 061

REACTIONS (2)
  - Contraindicated product administered [Unknown]
  - Drug effect incomplete [Unknown]
